FAERS Safety Report 4989535-0 (Version None)
Quarter: 2006Q2

REPORT INFORMATION
  Report Type: 
  Country: None (occurrence: None)
  Receive Date: 20060502
  Receipt Date: 20050919
  Transmission Date: 20061013
  Serious: Yes (Hospitalization, Other)
  Sender: FDA-Public Use
  Company Number: US-MERCK-0509USA02867

PATIENT
  Age: 59 Year
  Sex: Female
  Weight: 66 kg

DRUGS (4)
  1. VIOXX [Suspect]
     Indication: ARTHRITIS
     Route: 048
     Dates: start: 20010101, end: 20010101
  2. SKELAXIN [Concomitant]
     Route: 065
  3. XANAX [Concomitant]
     Route: 065
  4. ZOLOFT [Concomitant]
     Route: 065

REACTIONS (14)
  - ARTERIAL INSUFFICIENCY [None]
  - ATRIOVENTRICULAR BLOCK [None]
  - CARDIAC DISORDER [None]
  - CARDIAC FAILURE [None]
  - CAROTID ARTERY OCCLUSION [None]
  - CHEST PAIN [None]
  - HEPATOCELLULAR DAMAGE [None]
  - ISCHAEMIC STROKE [None]
  - MUSCLE DISORDER [None]
  - MYOCARDIAL INFARCTION [None]
  - RENAL INJURY [None]
  - SKIN INJURY [None]
  - THROMBOSIS [None]
  - ULCER [None]
